FAERS Safety Report 23949296 (Version 2)
Quarter: 2024Q4

REPORT INFORMATION
  Report Type: Spontaneous
  Country: US (occurrence: US)
  Receive Date: 20240607
  Receipt Date: 20241014
  Transmission Date: 20250114
  Serious: No
  Sender: SANOFI AVENTIS
  Company Number: US-SA-SAC20240604001207

PATIENT
  Sex: Female

DRUGS (9)
  1. DUPIXENT [Suspect]
     Active Substance: DUPILUMAB
     Indication: Asthma
     Dosage: 300 MG, QOW
     Route: 058
     Dates: start: 20210917
  2. ESZOPICLONE [Concomitant]
     Active Substance: ESZOPICLONE
  3. FLUTICASONE [Concomitant]
     Active Substance: FLUTICASONE
  4. LINZESS [Concomitant]
     Active Substance: LINACLOTIDE
  5. NUCALA [Concomitant]
     Active Substance: MEPOLIZUMAB
  6. METHYLPREDNISOLONE [Concomitant]
     Active Substance: METHYLPREDNISOLONE
  7. RIZATRIPTAN [Concomitant]
     Active Substance: RIZATRIPTAN
  8. TRULANCE [Concomitant]
     Active Substance: PLECANATIDE
  9. OXYCODONE AND ACETAMINOPHEN [Concomitant]
     Active Substance: ACETAMINOPHEN\OXYCODONE HYDROCHLORIDE
     Dosage: UNK

REACTIONS (2)
  - Bronchitis [Unknown]
  - Drug ineffective [Unknown]
